FAERS Safety Report 7833871-7 (Version None)
Quarter: 2011Q4

REPORT INFORMATION
  Report Type: 
  Country: None (occurrence: None)
  Receive Date: 20111020
  Receipt Date: 20111004
  Transmission Date: 20120403
  Serious: Yes (Hospitalization)
  Sender: FDA-Public Use
  Company Number: TPA2011A06672

PATIENT
  Age: 66 Year
  Sex: Male

DRUGS (11)
  1. ADENURIC (FEBUXOSTAT) [Suspect]
     Indication: ARTHRALGIA
     Dosage: ORAL
     Route: 048
     Dates: start: 20110511
  2. FUROSEMIDE [Concomitant]
  3. AMLODIPINE [Concomitant]
  4. IRBESARTAN [Concomitant]
  5. ATORVASTATIN CALCIUM [Concomitant]
  6. NOVOLOG [Concomitant]
  7. LANTUS [Concomitant]
  8. PRAZOSIN HCL [Concomitant]
  9. KETOPROFEN [Suspect]
     Indication: ARTHRALGIA
     Dosage: ORAL
     Route: 048
     Dates: start: 20110509
  10. PLAVIX [Concomitant]
  11. ATENOLOL [Concomitant]

REACTIONS (11)
  - ODYNOPHAGIA [None]
  - NECROTISING FASCIITIS [None]
  - SKIN ULCER [None]
  - TOXIC EPIDERMAL NECROLYSIS [None]
  - LYMPHOPENIA [None]
  - RENAL FAILURE ACUTE [None]
  - FUNGAL SKIN INFECTION [None]
  - EOSINOPHILIA [None]
  - TESTICULAR PAIN [None]
  - BLOOD CREATINE PHOSPHOKINASE INCREASED [None]
  - ERYTHEMA MULTIFORME [None]
